FAERS Safety Report 19103198 (Version 1)
Quarter: 2021Q2

REPORT INFORMATION
  Report Type: Spontaneous
  Country: US (occurrence: US)
  Receive Date: 20210407
  Receipt Date: 20210407
  Transmission Date: 20210717
  Serious: No
  Sender: FDA-Public Use
  Company Number: US-MYLANLABS-2021M1019027

PATIENT
  Sex: Female

DRUGS (1)
  1. ESTRADIOL VAGINAL CREAM USP [Suspect]
     Active Substance: ESTRADIOL
     Indication: PRODUCT USED FOR UNKNOWN INDICATION
     Dosage: 1 G 3 TIMES A WEEK
     Route: 067

REACTIONS (3)
  - Product label confusion [Recovered/Resolved]
  - Incorrect dose administered [Recovered/Resolved]
  - Product use issue [Recovered/Resolved]
